FAERS Safety Report 17196510 (Version 1)
Quarter: 2019Q4

REPORT INFORMATION
  Report Type: Spontaneous
  Country: FI (occurrence: FI)
  Receive Date: 20191224
  Receipt Date: 20191224
  Transmission Date: 20200122
  Serious: Yes (Hospitalization, Other)
  Sender: FDA-Public Use
  Company Number: FI-ABBVIE-19K-055-3208880-00

PATIENT
  Age: 34 Year
  Sex: Male

DRUGS (4)
  1. GONADOTROPIN CHORIONIC [Suspect]
     Active Substance: GONADOTROPHIN, CHORIONIC
     Indication: SEMEN VOLUME DECREASED
     Route: 065
  2. TESTOSTERONE. [Suspect]
     Active Substance: TESTOSTERONE
     Indication: PRODUCT USED FOR UNKNOWN INDICATION
     Route: 065
  3. TESTOSTERONE. [Suspect]
     Active Substance: TESTOSTERONE
     Indication: SEMEN VOLUME DECREASED
     Route: 065
  4. FOLLICLE-STIMULATING HORMONE, HUMAN (UROFOLLITROPIN) [Suspect]
     Active Substance: UROFOLLITROPIN
     Indication: SEMEN VOLUME DECREASED
     Route: 065

REACTIONS (7)
  - Ventricular tachycardia [Unknown]
  - Atrial fibrillation [Unknown]
  - Wolff-Parkinson-White syndrome [Unknown]
  - Ventricular hypertrophy [Unknown]
  - Secondary hypogonadism [Unknown]
  - Ventricular hypokinesia [Unknown]
  - Performance enhancing product use [Unknown]
